FAERS Safety Report 5113582-1 (Version None)
Quarter: 2006Q3

REPORT INFORMATION
  Report Type: 
  Country: None (occurrence: None)
  Receive Date: 20060921
  Receipt Date: 20060921
  Transmission Date: 20061208
  Serious: Yes (Life-Threatening, Hospitalization)
  Sender: FDA-Public Use
  Company Number: None

PATIENT
  Age: 55 Year
  Sex: Female
  Weight: 102 kg

DRUGS (9)
  1. PHENYTOIN [Suspect]
     Indication: EPILEPSY
     Dosage: SEE IMAGE
     Route: 048
  2. DOCUSATE [Concomitant]
  3. FERROUS SULFATE TAB [Concomitant]
  4. METFORMIN HCL [Concomitant]
  5. FOLIC ACID [Concomitant]
  6. HYDROCHLOROTHIAZDE TAB [Concomitant]
  7. METHOPROLOL [Concomitant]
  8. CLOPIDOGREL [Concomitant]
  9. FLUVASTATIN [Concomitant]

REACTIONS (5)
  - ASTHENIA [None]
  - DRUG TOXICITY [None]
  - MALAISE [None]
  - RENAL FAILURE ACUTE [None]
  - RHABDOMYOLYSIS [None]
